FAERS Safety Report 9226078 (Version 2)
Quarter: 2013Q2

REPORT INFORMATION
  Report Type: Spontaneous
  Country: US (occurrence: US)
  Receive Date: 20130411
  Receipt Date: 20130530
  Transmission Date: 20140414
  Serious: No
  Sender: FDA-Public Use
  Company Number: US-ASTRAZENECA-2013SE21476

PATIENT
  Sex: Female

DRUGS (2)
  1. SYMBICORT [Suspect]
     Indication: BRONCHIECTASIS
     Dosage: 160 MCG/4.5 MCG, 1 PUFF, TWO TIMES A DAY
     Route: 055
     Dates: start: 201207
  2. SYMBICORT [Suspect]
     Indication: BRONCHIECTASIS
     Dosage: 160 MCG/4.5 MCG, 2 PUFF, DAILY
     Route: 055
     Dates: start: 201207

REACTIONS (5)
  - Pneumonia [Recovered/Resolved]
  - Influenza [Recovered/Resolved]
  - Herpes zoster [Recovered/Resolved]
  - Throat irritation [Unknown]
  - Off label use [Unknown]
